FAERS Safety Report 9076350 (Version 1)
Quarter: 2013Q1

REPORT INFORMATION
  Report Type: Report from Study
  Country: US (occurrence: US)
  Receive Date: 20130129
  Receipt Date: 20130129
  Transmission Date: 20140127
  Serious: No
  Sender: FDA-Public Use
  Company Number: US-ABBOTT-12P-163-0949704-00

PATIENT
  Age: 62 Year
  Sex: Female

DRUGS (21)
  1. HUMIRA 40 MG/0.8 ML PEN [Suspect]
     Indication: CROHN^S DISEASE
     Dates: start: 20120622, end: 20120622
  2. HUMIRA 40 MG/0.8 ML PEN [Suspect]
     Dates: start: 20120623
  3. ASA [Concomitant]
     Indication: PRODUCT USED FOR UNKNOWN INDICATION
     Dosage: DAILY
     Route: 048
  4. ONGLYZA [Concomitant]
     Indication: DIABETES MELLITUS
     Dosage: DAILY
  5. LEVEMIR [Concomitant]
     Indication: DIABETES MELLITUS
     Dosage: BASED ON BLOOD SUGAR, USUALLY 50 UNITS
  6. APIDRA [Concomitant]
     Indication: DIABETES MELLITUS
     Dosage: BASED ON BLOOD SUGAR, USUALLY 45 UNITS
  7. AMIOTARONE [Concomitant]
     Indication: VENTRICULAR TACHYCARDIA
     Dosage: DAILY
     Route: 048
  8. NORVASC [Concomitant]
     Indication: HYPERTENSION
     Dosage: DAILY
     Route: 048
  9. LISINOPRIL [Concomitant]
     Indication: HYPERTENSION
     Dosage: DAILY
     Route: 048
  10. BYSTOLIC [Concomitant]
     Indication: HYPERTENSION
     Dosage: DAILY
     Route: 048
  11. CYMBALTA [Concomitant]
     Indication: DEPRESSION
     Route: 048
  12. 6-MP [Concomitant]
     Indication: CROHN^S DISEASE
  13. PREDNISONE [Concomitant]
     Indication: CROHN^S DISEASE
     Dosage: DAILY
     Route: 048
  14. DEXILANT [Concomitant]
     Indication: CROHN^S DISEASE
     Dosage: DAILY
     Route: 048
  15. ZANTAC [Concomitant]
     Indication: PRODUCT USED FOR UNKNOWN INDICATION
     Dosage: DAILY
     Route: 048
  16. MAGNESIUM [Concomitant]
     Indication: PRODUCT USED FOR UNKNOWN INDICATION
     Dosage: DAILY
     Route: 048
  17. VITAMIN B12 [Concomitant]
     Indication: PRODUCT USED FOR UNKNOWN INDICATION
     Dosage: DAILY
     Route: 048
  18. VITAMIN D3 [Concomitant]
     Indication: PRODUCT USED FOR UNKNOWN INDICATION
     Dosage: DAILY
     Route: 048
  19. CENTRUM SILVER [Concomitant]
     Indication: PRODUCT USED FOR UNKNOWN INDICATION
     Dosage: DAILY
     Route: 048
  20. CINNAMON [Concomitant]
     Indication: PRODUCT USED FOR UNKNOWN INDICATION
     Dosage: DAILY
     Route: 048
  21. IRON [Concomitant]
     Indication: PRODUCT USED FOR UNKNOWN INDICATION
     Dosage: DAILY
     Route: 048

REACTIONS (2)
  - Contusion [Not Recovered/Not Resolved]
  - Injection site bruising [Not Recovered/Not Resolved]
